FAERS Safety Report 9321804 (Version 3)
Quarter: 2014Q1

REPORT INFORMATION
  Report Type: Report from Study
  Country: IT (occurrence: None)
  Receive Date: 20130528
  Receipt Date: 20140311
  Transmission Date: 20141002
  Serious: Yes (Hospitalization)
  Sender: FDA-Public Use
  Company Number: SYM-2013-04056

PATIENT
  Age: 50 Year
  Sex: Female

DRUGS (8)
  1. 5 FU [Suspect]
     Indication: COLORECTAL CANCER METASTATIC
     Dosage: EVERY OTHER WEEK,
     Route: 041
     Dates: start: 20130314, end: 20130314
  2. AFLIBERCEPT [Suspect]
     Indication: COLORECTAL CANCER METASTATIC
     Dosage: EVERY OTHER WEEK,
     Route: 041
     Dates: start: 20130314, end: 20130314
  3. IRINOTECAN [Suspect]
     Indication: COLORECTAL CANCER METASTATIC
     Dosage: EVERY OTHER WEEK,
     Route: 041
     Dates: start: 20130314, end: 20130314
  4. LEUCOVORIN (FOLINIC ACID) (SOLUTION FOR INFUSION) (FOLINIC ACID) [Suspect]
     Indication: COLORECTAL CANCER METASTATIC
     Dosage: EVERY OTHER WEEK,
     Route: 041
     Dates: start: 20130314, end: 20130314
  5. ANALGESICS (ANALGESICS) [Concomitant]
  6. KCL-RETARD (POTASSIUM CHLORIDE) [Concomitant]
  7. IRON (IRON) (IRON) [Concomitant]
  8. PANTOPRAZOLE (PANTOPRAZOLE) (PANTOPRAZOLE) [Concomitant]

REACTIONS (1)
  - Abdominal wall abscess [None]
